FAERS Safety Report 7801590-9 (Version None)
Quarter: 2011Q4

REPORT INFORMATION
  Report Type: 
  Country: None (occurrence: None)
  Receive Date: 20111006
  Receipt Date: 20111006
  Transmission Date: 20120403
  Serious: Yes (Hospitalization)
  Sender: FDA-Public Use
  Company Number: None

PATIENT
  Age: 86 Year
  Sex: Female
  Weight: 51.6 kg

DRUGS (14)
  1. PRAVASTATIN [Concomitant]
  2. CA + VIT D [Concomitant]
  3. VIT D [Concomitant]
  4. TOPROL-XL [Concomitant]
  5. SYNTHROID [Concomitant]
  6. VITAMIN B-12 [Suspect]
  7. LOVAZA [Concomitant]
  8. FOSAMAX [Concomitant]
  9. PLAVIX [Concomitant]
  10. RAMIPRIL [Suspect]
     Indication: HYPERTENSION
     Dosage: 2.5MG DAILY PO RECENT
     Route: 048
  11. ASPIRIN [Concomitant]
  12. FOLIC ACID [Concomitant]
  13. VIT D3 [Concomitant]
  14. CALCIUM CARBONATE [Concomitant]

REACTIONS (5)
  - CHEST PAIN [None]
  - DYSPNOEA [None]
  - COUGH [None]
  - CHEST DISCOMFORT [None]
  - HIATUS HERNIA [None]
